FAERS Safety Report 11059225 (Version 1)
Quarter: 2015Q2

REPORT INFORMATION
  Report Type: Spontaneous
  Country: US (occurrence: None)
  Receive Date: 20150420
  Receipt Date: 20150420
  Transmission Date: 20150821
  Serious: No
  Sender: FDA-Public Use
  Company Number: AEGR001226

PATIENT
  Age: 75 Year
  Sex: Male
  Weight: 118.8 kg

DRUGS (1)
  1. JUXTAPID [Suspect]
     Active Substance: LOMITAPIDE MESYLATE
     Indication: TYPE IIA HYPERLIPIDAEMIA
     Route: 048
     Dates: start: 20150225

REACTIONS (4)
  - Weight decreased [None]
  - Flatulence [None]
  - Trigeminal neuralgia [None]
  - Nausea [None]

NARRATIVE: CASE EVENT DATE: 201503
